FAERS Safety Report 25756401 (Version 1)
Quarter: 2025Q3

REPORT INFORMATION
  Report Type: Spontaneous
  Country: US (occurrence: None)
  Receive Date: 20250902
  Receipt Date: 20250902
  Transmission Date: 20251020
  Serious: Yes (Other)
  Sender: FDA-CTU
  Company Number: None

PATIENT
  Age: 30 Year
  Sex: Male

DRUGS (3)
  1. CYANOCOBALAMIN\TOPIRAMATE [Suspect]
     Active Substance: CYANOCOBALAMIN\TOPIRAMATE
     Indication: Weight decreased
     Dosage: 44 MG TWICE A DAY ORAL ?
     Route: 048
     Dates: start: 20250718, end: 20250801
  2. buPROPion 300 mg/24 hours (XL) oral tablet, extended release [Concomitant]
     Dates: start: 20250718, end: 20250801
  3. metFORMIN HCl ER Oral Tablet Extended Release 24 Hour 500 MG [Concomitant]
     Dates: start: 20250319, end: 20250801

REACTIONS (1)
  - Anxiety [None]

NARRATIVE: CASE EVENT DATE: 20250801
